FAERS Safety Report 11735026 (Version 2)
Quarter: 2015Q4

REPORT INFORMATION
  Report Type: Report from Study
  Country: US (occurrence: US)
  Receive Date: 20151113
  Receipt Date: 20151223
  Transmission Date: 20160304
  Serious: No
  Sender: FDA-Public Use
  Company Number: PHEH2015US023160

PATIENT
  Age: 40 Year
  Sex: Female
  Weight: 73.48 kg

DRUGS (1)
  1. TOBI PODHALER [Suspect]
     Active Substance: TOBRAMYCIN
     Indication: CYSTIC FIBROSIS
     Dosage: 4 DF (CAPSULES), BID
     Route: 065
     Dates: start: 20150817, end: 20151030

REACTIONS (8)
  - Fatigue [Unknown]
  - Speech disorder [Unknown]
  - Cough [Unknown]
  - Renal impairment [Unknown]
  - Dysphonia [Recovered/Resolved]
  - Oropharyngeal pain [Unknown]
  - Dehydration [Unknown]
  - Aphonia [Unknown]

NARRATIVE: CASE EVENT DATE: 20150817
